FAERS Safety Report 5774116-1 (Version None)
Quarter: 2008Q2

REPORT INFORMATION
  Report Type: 
  Country: None (occurrence: None)
  Receive Date: 20080616
  Receipt Date: 20080327
  Transmission Date: 20081010
  Serious: Yes (Life-Threatening)
  Sender: FDA-Public Use
  Company Number: FR-AVENTIS-200812161FR

PATIENT
  Age: 44 Year
  Sex: Male

DRUGS (12)
  1. FLAGYL [Suspect]
     Route: 042
     Dates: start: 20071103, end: 20071119
  2. PENTACARINAT [Suspect]
     Indication: VISCERAL LEISHMANIASIS
     Route: 042
     Dates: start: 20071103, end: 20071119
  3. BACTRIM DS [Concomitant]
     Route: 048
  4. AMOXICILLIN [Concomitant]
     Indication: ESCHERICHIA BACTERAEMIA
     Route: 048
     Dates: end: 20071016
  5. IRBESARTAN [Concomitant]
     Route: 048
     Dates: end: 20071203
  6. KIVEXA [Concomitant]
     Route: 048
  7. NORVIR [Concomitant]
     Route: 048
  8. PROTEASE INHIBITORS [Concomitant]
     Route: 048
  9. BARACLUDE [Concomitant]
     Route: 048
  10. NEXIUM [Concomitant]
     Route: 048
     Dates: start: 20061227
  11. LEDERFOLINE [Concomitant]
     Route: 048
  12. TRIFLUCAN [Concomitant]
     Indication: OROPHARYNGEAL CANDIDIASIS
     Route: 048

REACTIONS (1)
  - PANCYTOPENIA [None]
